FAERS Safety Report 14910316 (Version 1)
Quarter: 2018Q2

REPORT INFORMATION
  Report Type: Spontaneous
  Country: US (occurrence: US)
  Receive Date: 20180517
  Receipt Date: 20180517
  Transmission Date: 20180711
  Serious: Yes (Hospitalization, Other)
  Sender: FDA-Public Use
  Company Number: US-SUNOVION-2018SUN001964

PATIENT
  Age: 53 Year
  Sex: Female

DRUGS (14)
  1. INSULIN GLARGINE [Concomitant]
     Active Substance: INSULIN GLARGINE
  2. FLUCONAZOLE. [Concomitant]
     Active Substance: FLUCONAZOLE
  3. POLYETHYLENE GLYCOL [Concomitant]
     Active Substance: POLYETHYLENE GLYCOLS
  4. BUPRENORPHINE AND NALOXONE [Concomitant]
     Active Substance: BUPRENORPHINE\NALOXONE
     Indication: DRUG USE DISORDER
  5. CYPROHEPTADINE. [Concomitant]
     Active Substance: CYPROHEPTADINE
  6. OMEPRAZOLE. [Concomitant]
     Active Substance: OMEPRAZOLE
  7. ESZOPICLONE. [Suspect]
     Active Substance: ESZOPICLONE
     Dosage: UNKNOWN
     Route: 048
  8. DOXEPIN [Concomitant]
     Active Substance: DOXEPIN
  9. RANITIDINE. [Concomitant]
     Active Substance: RANITIDINE
  10. HYDROXYZINE [Concomitant]
     Active Substance: HYDROXYZINE HYDROCHLORIDE
  11. LAMOTRIGINE. [Concomitant]
     Active Substance: LAMOTRIGINE
  12. SERTRALINE [Concomitant]
     Active Substance: SERTRALINE HYDROCHLORIDE
  13. MELATONIN [Concomitant]
     Active Substance: MELATONIN
  14. MELOXICAM. [Concomitant]
     Active Substance: MELOXICAM

REACTIONS (20)
  - Mental status changes [Unknown]
  - Asthenia [Unknown]
  - Dyskinesia [Unknown]
  - Dysarthria [Recovered/Resolved]
  - Blunted affect [Unknown]
  - Catatonia [Recovering/Resolving]
  - Disorientation [Recovering/Resolving]
  - Social avoidant behaviour [Recovering/Resolving]
  - Loose associations [Unknown]
  - Thinking abnormal [Recovering/Resolving]
  - Hallucination, visual [Unknown]
  - Disorganised speech [Recovered/Resolved]
  - Suicidal ideation [Unknown]
  - Fall [Unknown]
  - Hypophagia [Unknown]
  - Eye movement disorder [Recovering/Resolving]
  - Depressed mood [Unknown]
  - Thought blocking [Unknown]
  - Agitation [Recovering/Resolving]
  - Somnolence [Recovering/Resolving]
